FAERS Safety Report 26087075 (Version 1)
Quarter: 2025Q4

REPORT INFORMATION
  Report Type: Spontaneous
  Country: US (occurrence: US)
  Receive Date: 20251125
  Receipt Date: 20251125
  Transmission Date: 20260118
  Serious: Yes (Other)
  Sender: ASTELLAS
  Company Number: US-ASTELLAS-2025-AER-064786

PATIENT
  Age: 55 Year
  Sex: Male

DRUGS (5)
  1. LEXISCAN [Suspect]
     Active Substance: REGADENOSON
     Indication: Cardiac stress test
     Dosage: BOLUS
     Route: 065
  2. LEXISCAN [Suspect]
     Active Substance: REGADENOSON
  3. LEXISCAN [Suspect]
     Active Substance: REGADENOSON
  4. LEXISCAN [Suspect]
     Active Substance: REGADENOSON
  5. CARDIOLITE [Suspect]
     Active Substance: TECHNETIUM TC-99M SESTAMIBI
     Indication: Cardiac stress test
     Route: 050

REACTIONS (4)
  - Unresponsive to stimuli [Recovered/Resolved]
  - Electrocardiogram ST segment elevation [Recovered/Resolved]
  - Nausea [Unknown]
  - Retching [Unknown]
